FAERS Safety Report 6551378-4 (Version None)
Quarter: 2010Q1

REPORT INFORMATION
  Report Type: 
  Country: None (occurrence: None)
  Receive Date: 20100126
  Receipt Date: 20100121
  Transmission Date: 20100710
  Serious: Yes (Other)
  Sender: FDA-Public Use
  Company Number: BR-ROCHE-516481

PATIENT
  Sex: Male
  Weight: 68 kg

DRUGS (3)
  1. RIVOTRIL [Suspect]
     Indication: ANXIETY
     Dosage: ADDITIONAL INDICATION: AGORAPHOBIA; DOSE REPORTED: 1/4 TAB TWICE A DAY
     Route: 048
     Dates: start: 20030101
  2. DIPIRONE [Concomitant]
  3. PONDERA [Concomitant]

REACTIONS (7)
  - BLOOD GLUCOSE INCREASED [None]
  - CONSTIPATION [None]
  - DEPENDENCE [None]
  - DIZZINESS [None]
  - EYE PAIN [None]
  - HEADACHE [None]
  - SWELLING FACE [None]
